FAERS Safety Report 7828559 (Version 4)
Quarter: 2013Q3

REPORT INFORMATION
  Report Type: Spontaneous
  Country: DE (occurrence: DE)
  Receive Date: 20110225
  Receipt Date: 20130702
  Transmission Date: 20140515
  Serious: Yes (Death, Life-Threatening, Hospitalization)
  Sender: FDA-Public Use
  Company Number: DE-JNJFOC-20110205737

PATIENT
  Age: 55 Year
  Sex: Female
  Weight: 38.37 kg

DRUGS (7)
  1. RISPERDAL CONSTA [Suspect]
     Indication: SCHIZOPHRENIA
     Route: 030
     Dates: start: 20100716, end: 20100716
  2. RISPERDAL CONSTA [Suspect]
     Indication: SCHIZOPHRENIA
     Route: 030
     Dates: start: 20100702, end: 20100702
  3. OLANZAPINE [Concomitant]
     Route: 065
  4. SPIRONOLACTON [Concomitant]
     Route: 065
  5. HEPA MERZ [Concomitant]
     Route: 065
  6. KEPPRA [Concomitant]
     Route: 048
  7. NEXIUM [Concomitant]
     Route: 065

REACTIONS (11)
  - Intestinal infarction [Fatal]
  - Abdominal pain [Unknown]
  - Altered state of consciousness [Unknown]
  - Angina pectoris [Unknown]
  - Hospitalisation [Unknown]
  - Psychotic disorder [Unknown]
  - General physical health deterioration [Unknown]
  - Vomiting [Unknown]
  - Local swelling [Unknown]
  - Abdominal distension [Unknown]
  - Drug ineffective [Unknown]
